FAERS Safety Report 9797622 (Version 4)
Quarter: 2018Q3

REPORT INFORMATION
  Report Type: Spontaneous
  Country: BR (occurrence: BR)
  Receive Date: 20140106
  Receipt Date: 20180801
  Transmission Date: 20181010
  Serious: Yes (Other)
  Sender: FDA-Public Use
  Company Number: BR-AMGEN-BRACT2012021660

PATIENT
  Age: 59 Year
  Sex: Female
  Weight: 72 kg

DRUGS (7)
  1. DEPURAN [Concomitant]
  2. DEPURAN [Concomitant]
     Dosage: 2 GTT, NOT PROVIDED FREQUENCY
  3. ENBREL [Suspect]
     Active Substance: ETANERCEPT
     Dosage: 50 MG, QWK
     Route: 058
     Dates: start: 201110
  4. METHOTREXATE. [Concomitant]
     Active Substance: METHOTREXATE
     Indication: RHEUMATOID ARTHRITIS
     Dosage: UNK
     Dates: start: 2004
  5. ENBREL [Suspect]
     Active Substance: ETANERCEPT
     Indication: RHEUMATOID ARTHRITIS
     Dosage: 50 MG, QWK
     Route: 058
     Dates: start: 20111104
  6. CAPTOPRIL. [Concomitant]
     Active Substance: CAPTOPRIL
     Indication: HYPERTENSION
     Dosage: UNK
     Dates: start: 2011
  7. PREDNISONE. [Concomitant]
     Active Substance: PREDNISONE
     Dosage: UNK

REACTIONS (11)
  - Ocular vascular disorder [Unknown]
  - Injection site swelling [Recovered/Resolved]
  - Injection site pruritus [Unknown]
  - Skin discolouration [Unknown]
  - Injection site erythema [Unknown]
  - Drug ineffective [Unknown]
  - Pain in extremity [Unknown]
  - Peripheral swelling [Unknown]
  - Skin warm [Unknown]
  - Injection site pain [Unknown]
  - Headache [Not Recovered/Not Resolved]

NARRATIVE: CASE EVENT DATE: 201111
